FAERS Safety Report 8025342-2 (Version None)
Quarter: 2011Q4

REPORT INFORMATION
  Report Type: 
  Country: None (occurrence: None)
  Receive Date: 20111130
  Receipt Date: 20111101
  Transmission Date: 20120403
  Serious: Yes (Hospitalization)
  Sender: FDA-Public Use
  Company Number: 336992

PATIENT
  Age: 56 Year
  Sex: Male
  Weight: 122.4 kg

DRUGS (4)
  1. OXYCODONE HCL [Concomitant]
  2. NOVOLOG [Suspect]
  3. NOVOLOG [Suspect]
     Indication: DIABETES MELLITUS
     Dosage: 6 IU, QD, SUBCUTANEOUS
     Route: 057
     Dates: start: 20100101
  4. LEVEMIR [Suspect]
     Indication: DIABETES MELLITUS
     Dosage: 20 IU, QD, SUBCUTANEOUS
     Route: 058
     Dates: start: 20100101

REACTIONS (1)
  - BLOOD GLUCOSE INCREASED [None]
